FAERS Safety Report 6467389-3 (Version None)
Quarter: 2009Q4

REPORT INFORMATION
  Report Type: 
  Country: None (occurrence: None)
  Receive Date: 20091202
  Receipt Date: 20091109
  Transmission Date: 20100525
  Serious: Yes (Hospitalization)
  Sender: FDA-Public Use
  Company Number: A0832313A

PATIENT
  Sex: Female

DRUGS (9)
  1. BUPROPION HCL [Suspect]
     Indication: DRUG USE FOR UNKNOWN INDICATION
     Dosage: 150MG TWICE PER DAY
     Route: 048
  2. CARDIZEM CD [Suspect]
     Indication: DRUG USE FOR UNKNOWN INDICATION
     Dosage: 360MG PER DAY
     Route: 048
  3. SERTRALINE HCL [Concomitant]
  4. GEMFIBROZIL [Concomitant]
  5. LEVOTHYROXINE SODIUM [Concomitant]
  6. INSULIN ASPART [Concomitant]
  7. INSULIN GLARGINE [Concomitant]
  8. DEPAKOTE [Concomitant]
  9. PREVACID [Concomitant]

REACTIONS (6)
  - ACTIVITIES OF DAILY LIVING IMPAIRED [None]
  - DEMENTIA [None]
  - GAIT DISTURBANCE [None]
  - ILL-DEFINED DISORDER [None]
  - MALAISE [None]
  - PERFORMANCE STATUS DECREASED [None]
